FAERS Safety Report 9497782 (Version 1)
Quarter: 2013Q3

REPORT INFORMATION
  Report Type: Spontaneous
  Country: US (occurrence: US)
  Receive Date: 20130904
  Receipt Date: 20130904
  Transmission Date: 20140515
  Serious: No
  Sender: FDA-Public Use
  Company Number: US-AMGEN-USASP2013060241

PATIENT
  Age: 82 Year
  Sex: Female

DRUGS (3)
  1. ENBREL [Suspect]
     Indication: RHEUMATOID ARTHRITIS
     Dosage: 50 MG, QWK
     Route: 065
     Dates: start: 20130822
  2. ENBREL [Suspect]
  3. METHOTREXATE [Concomitant]
     Dosage: SIX 2.5MG TABLETS ONCE WEEKLY

REACTIONS (3)
  - Injection site bruising [Not Recovered/Not Resolved]
  - Extra dose administered [Recovered/Resolved]
  - Paraesthesia [Recovered/Resolved]
